APPROVED DRUG PRODUCT: OSELTAMIVIR PHOSPHATE
Active Ingredient: OSELTAMIVIR PHOSPHATE
Strength: EQ 45MG BASE
Dosage Form/Route: CAPSULE;ORAL
Application: A218009 | Product #003 | TE Code: AB
Applicant: ZHEJIANG POLY PHARM CO LTD
Approved: Oct 2, 2025 | RLD: No | RS: No | Type: RX